FAERS Safety Report 5100643-6 (Version None)
Quarter: 2006Q3

REPORT INFORMATION
  Report Type: 
  Country: None (occurrence: None)
  Receive Date: 20060906
  Receipt Date: 20060829
  Transmission Date: 20061208
  Serious: Yes (Hospitalization)
  Sender: FDA-Public Use
  Company Number: TPA2006A01447

PATIENT
  Age: 71 Year
  Sex: Female
  Weight: 71.6683 kg

DRUGS (7)
  1. ACTOS [Suspect]
     Indication: DIABETES MELLITUS NON-INSULIN-DEPENDENT
     Dosage: 30 MG, 1 IN 1 D, PER ORAL
     Route: 048
     Dates: start: 20050201
  2. METFORMIN [Concomitant]
  3. ATENOLOL [Concomitant]
  4. ZOCOR [Concomitant]
  5. EVISTA [Concomitant]
  6. CYANOCOBALAMIN [Concomitant]
  7. CALTRATE (CALCIUM CARBONATE) [Concomitant]

REACTIONS (4)
  - ANAEMIA [None]
  - ATRIAL TACHYCARDIA [None]
  - CONDITION AGGRAVATED [None]
  - RENAL DISORDER [None]
